FAERS Safety Report 9107606 (Version 1)
Quarter: 2013Q1

REPORT INFORMATION
  Report Type: Spontaneous
  Country: US (occurrence: US)
  Receive Date: 20130221
  Receipt Date: 20130221
  Transmission Date: 20140127
  Serious: No
  Sender: FDA-Public Use
  Company Number: US-TEVA-387534USA

PATIENT
  Sex: Male
  Weight: 79.45 kg

DRUGS (1)
  1. NUVIGIL [Suspect]
     Indication: SOMNOLENCE

REACTIONS (2)
  - Vomiting [Unknown]
  - Nausea [Unknown]
